FAERS Safety Report 24524484 (Version 4)
Quarter: 2025Q1

REPORT INFORMATION
  Report Type: Spontaneous
  Country: US (occurrence: US)
  Receive Date: 20241019
  Receipt Date: 20250214
  Transmission Date: 20250408
  Serious: No
  Sender: ROCHE
  Company Number: US-ROCHE-10000105932

PATIENT
  Sex: Female

DRUGS (1)
  1. ALECENSA [Suspect]
     Active Substance: ALECTINIB HYDROCHLORIDE
     Indication: Lung neoplasm malignant
     Route: 048
     Dates: start: 202408

REACTIONS (6)
  - Hypotension [Unknown]
  - Constipation [Unknown]
  - Pleural effusion [Unknown]
  - Lung disorder [Unknown]
  - Dyspnoea [Unknown]
  - Rash [Unknown]
